FAERS Safety Report 18386278 (Version 1)
Quarter: 2020Q4

REPORT INFORMATION
  Report Type: Spontaneous
  Country: US (occurrence: US)
  Receive Date: 20201014
  Receipt Date: 20201014
  Transmission Date: 20210114
  Serious: Yes (Other)
  Sender: FDA-Public Use
  Company Number: None

PATIENT
  Age: 63 Year
  Sex: Male
  Weight: 108 kg

DRUGS (15)
  1. GLUCOSAMINE [Concomitant]
     Active Substance: GLUCOSAMINE
  2. VIT D, E ,C [Concomitant]
  3. TURMERIC [Concomitant]
     Active Substance: HERBALS\TURMERIC
  4. COLLAGEN [Concomitant]
     Active Substance: COLLAGEN
  5. SALMON OIL [Concomitant]
     Active Substance: FISH OIL
  6. MSM [Concomitant]
     Active Substance: DIMETHYL SULFONE
  7. LEVOTHYROXINE SODIUM 25 MCG TAB [Suspect]
     Active Substance: LEVOTHYROXINE SODIUM
     Indication: HYPOTHYROIDISM
     Dosage: ?          QUANTITY:1 TABLET(S);?
     Route: 048
     Dates: start: 20201011, end: 20201013
  8. METOPROLOL SUCCINATE. [Concomitant]
     Active Substance: METOPROLOL SUCCINATE
  9. BENAZEPRIL [Concomitant]
     Active Substance: BENAZEPRIL HYDROCHLORIDE
  10. CHONDROITIN [Concomitant]
     Active Substance: CHONDROITIN
  11. COENZYME Q10 [Concomitant]
     Active Substance: DIETARY SUPPLEMENT\UBIDECARENONE
  12. FOLIC ACID. [Concomitant]
     Active Substance: FOLIC ACID
  13. VALACYCLOVIR [Concomitant]
     Active Substance: VALACYCLOVIR HYDROCHLORIDE
  14. GABAPENTIN. [Concomitant]
     Active Substance: GABAPENTIN
  15. KRILL OIL [Concomitant]
     Active Substance: DIETARY SUPPLEMENT\KRILL OIL

REACTIONS (6)
  - Arthralgia [None]
  - Photosensitivity reaction [None]
  - Neck pain [None]
  - Therapy cessation [None]
  - Hyperacusis [None]
  - Thyroid mass [None]

NARRATIVE: CASE EVENT DATE: 20201013
